FAERS Safety Report 7622383-1 (Version None)
Quarter: 2011Q3

REPORT INFORMATION
  Report Type: 
  Country: None (occurrence: None)
  Receive Date: 20110711
  Receipt Date: 20110704
  Transmission Date: 20111222
  Serious: Yes (Other)
  Sender: FDA-Public Use
  Company Number: 2011SP030825

PATIENT
  Sex: Female

DRUGS (1)
  1. NUVARING [Suspect]
     Indication: CONTRACEPTION
     Dates: start: 20100101

REACTIONS (3)
  - MENSTRUATION IRREGULAR [None]
  - VULVOVAGINAL MYCOTIC INFECTION [None]
  - PYELONEPHRITIS [None]
